FAERS Safety Report 7494719-6 (Version None)
Quarter: 2011Q2

REPORT INFORMATION
  Report Type: 
  Country: None (occurrence: None)
  Receive Date: 20110520
  Receipt Date: 20110512
  Transmission Date: 20111010
  Serious: Yes (Hospitalization)
  Sender: FDA-Public Use
  Company Number: JP-GENZYME-THYM-1002184

PATIENT
  Sex: Female
  Weight: 43 kg

DRUGS (36)
  1. THYMOGLOBULIN [Suspect]
     Indication: BONE MARROW CONDITIONING REGIMEN
     Dosage: 105 MG, QD
     Route: 042
     Dates: start: 20100312, end: 20100313
  2. FLUDARABINE PHOSPHATE [Suspect]
     Indication: APLASTIC ANAEMIA
     Dosage: 42 MG, QD
     Route: 065
     Dates: start: 20100314, end: 20100317
  3. GRANISETRON HCL [Concomitant]
     Indication: PROPHYLAXIS OF NAUSEA AND VOMITING
     Dosage: UNK
     Dates: start: 20100310, end: 20100317
  4. PREDNISOLONE [Concomitant]
     Indication: APLASTIC ANAEMIA
     Dosage: UNK
     Dates: start: 20100314, end: 20100317
  5. TACROLIMUS [Concomitant]
     Indication: PROPHYLAXIS AGAINST GRAFT VERSUS HOST DISEASE
     Dosage: UNK
     Dates: start: 20100318, end: 20100425
  6. FILGRASTIM (GENETICAL RECOMBINATION) [Concomitant]
     Indication: APLASTIC ANAEMIA
     Dosage: UNK
     Dates: start: 20100326, end: 20100405
  7. MICAFUNGIN SODIUM [Concomitant]
     Indication: ANTIFUNGAL PROPHYLAXIS
     Dosage: UNK
     Dates: start: 20100312, end: 20100329
  8. OMEPRAZOLE [Concomitant]
     Indication: PROPHYLAXIS AGAINST GASTROINTESTINAL ULCER
     Dosage: UNK
     Dates: start: 20100319, end: 20100326
  9. ACYCLOVIR [Concomitant]
     Dosage: UNK
     Dates: start: 20100317, end: 20100408
  10. NICARDIPINE HYDROCHLORIDE [Concomitant]
     Indication: HYPERTENSION
     Dosage: UNK
     Dates: start: 20100322, end: 20100402
  11. RED BLOOD CELLS, CONCENTRATED [Concomitant]
     Indication: APLASTIC ANAEMIA
     Dosage: UNK
     Dates: start: 20090222, end: 20100414
  12. RED BLOOD CELLS, CONCENTRATED [Concomitant]
     Dosage: UNK
     Dates: start: 20090224, end: 20100405
  13. ACYCLOVIR [Concomitant]
     Indication: ANTIVIRAL PROPHYLAXIS
     Dosage: UNK
     Dates: start: 20100312, end: 20100625
  14. MAGNESIUM SULFATE [Concomitant]
     Indication: CONSTIPATION PROPHYLAXIS
     Dosage: UNK
     Dates: start: 20100322, end: 20100430
  15. TACROLIMUS [Concomitant]
     Dosage: UNK
     Dates: start: 20100421
  16. METHOTREXATE [Concomitant]
     Indication: PROPHYLAXIS AGAINST GRAFT VERSUS HOST DISEASE
     Dosage: UNK
     Dates: start: 20100320, end: 20100330
  17. CANDESARTAN CILEXETIL [Concomitant]
     Indication: HYPERTENSION
     Dosage: UNK
     Dates: start: 20090402, end: 20090415
  18. VOGLIBOSE [Concomitant]
     Indication: DIABETES MELLITUS
     Dosage: UNK
     Dates: start: 20090408
  19. RABEPRAZOLE SODIUM [Concomitant]
     Indication: PROPHYLAXIS AGAINST GASTROINTESTINAL ULCER
     Dosage: UNK
     Dates: start: 20090322
  20. SULFAMETHOXAZOLE TRIMETHOPRIM [Concomitant]
     Indication: ANTIFUNGAL PROPHYLAXIS
     Dosage: UNK
     Dates: start: 20100607
  21. POTASSIUM CHLORIDE [Concomitant]
     Indication: PROPHYLAXIS
     Dosage: UNK
     Route: 065
     Dates: start: 20100426, end: 20100513
  22. URSODIOL [Concomitant]
     Indication: PROPHYLAXIS
     Dosage: UNK
     Dates: start: 20100312, end: 20100620
  23. GRANISETRON HCL [Concomitant]
  24. FUROSEMIDE [Concomitant]
     Indication: HYPERTENSION
     Dosage: UNK
     Dates: start: 20100314, end: 20100405
  25. TACROLIMUS [Concomitant]
     Dosage: UNK
     Dates: start: 20100504, end: 20100704
  26. METOCLOPRAMIDE [Concomitant]
     Indication: PROPHYLAXIS OF NAUSEA AND VOMITING
     Dosage: UNK
     Dates: start: 20100316, end: 20100408
  27. PENTAMIDINE ISETHIONATE [Concomitant]
     Indication: ANTIFUNGAL PROPHYLAXIS
     Dosage: UNK
     Dates: start: 20100501, end: 20100501
  28. CEFPIROME SULFATE [Concomitant]
     Indication: PROPHYLAXIS
     Dosage: UNK
     Route: 065
     Dates: start: 20100327, end: 20100401
  29. LEVOFLOXACIN [Concomitant]
     Indication: ANTIBIOTIC PROPHYLAXIS
     Dosage: UNK
     Dates: start: 20100306, end: 20100422
  30. REBAMIPIDE [Concomitant]
     Indication: GASTRITIS PROPHYLAXIS
     Dosage: UNK
     Dates: start: 20100312
  31. MESNA [Concomitant]
     Indication: PROPHYLAXIS
     Dosage: UNK
     Dates: start: 20100314, end: 20100317
  32. INSULIN HUMAN (GENETICAL RECOMBINATION) [Concomitant]
     Indication: DIABETES MELLITUS
     Dosage: UNK
     Dates: start: 20100322, end: 20100406
  33. CYCLOPHOSPHAMIDE [Concomitant]
     Indication: APLASTIC ANAEMIA
     Dosage: UNK
     Dates: start: 20100314, end: 20100317
  34. HYDROXYZINE HYDROCHLORIDE [Concomitant]
     Indication: PROPHYLAXIS OF NAUSEA AND VOMITING
     Dosage: UNK
     Dates: start: 20100316, end: 20100319
  35. DILTIAZEM HCL [Concomitant]
     Indication: HYPERTENSION
     Dosage: UNK
     Dates: start: 20100319, end: 20100322
  36. AMLODIPINE BESYLATE [Concomitant]
     Indication: HYPERTENSION
     Dosage: UNK
     Dates: start: 20100330

REACTIONS (18)
  - CYTOMEGALOVIRUS TEST POSITIVE [None]
  - ASPERGILLUS TEST POSITIVE [None]
  - URTICARIA [None]
  - BACK PAIN [None]
  - CANDIDA TEST POSITIVE [None]
  - PYREXIA [None]
  - NAUSEA [None]
  - LIVER DISORDER [None]
  - DYSPNOEA [None]
  - HEADACHE [None]
  - DIARRHOEA [None]
  - ACUTE GRAFT VERSUS HOST DISEASE IN SKIN [None]
  - VOMITING [None]
  - STOMATITIS [None]
  - HYPERURICAEMIA [None]
  - HYPOKALAEMIA [None]
  - RASH [None]
  - PRURITUS [None]
